FAERS Safety Report 24645761 (Version 1)
Quarter: 2024Q4

REPORT INFORMATION
  Report Type: Report from Study
  Country: ZA (occurrence: ZA)
  Receive Date: 20241121
  Receipt Date: 20241121
  Transmission Date: 20250114
  Serious: Yes (Hospitalization, Other)
  Sender: ALEXION PHARMACEUTICALS
  Company Number: ZA-AstraZeneca-CH-00746970A

PATIENT
  Age: 79 Year

DRUGS (22)
  1. DAPAGLIFLOZIN [Suspect]
     Active Substance: DAPAGLIFLOZIN
     Indication: Diabetes mellitus
     Dosage: 10 MILLIGRAM
  2. DAPAGLIFLOZIN [Suspect]
     Active Substance: DAPAGLIFLOZIN
     Dosage: 10 MILLIGRAM
  3. DAPAGLIFLOZIN [Suspect]
     Active Substance: DAPAGLIFLOZIN
     Dosage: 10 MILLIGRAM
  4. DAPAGLIFLOZIN [Suspect]
     Active Substance: DAPAGLIFLOZIN
     Dosage: 10 MILLIGRAM
  5. BUDESONIDE\FORMOTEROL [Suspect]
     Active Substance: BUDESONIDE\FORMOTEROL
     Indication: Asthma
     Dosage: 60 MICROGRAM PER INHALATION
  6. BUDESONIDE\FORMOTEROL [Suspect]
     Active Substance: BUDESONIDE\FORMOTEROL
     Dosage: 60 MICROGRAM PER INHALATION
  7. BUDESONIDE\FORMOTEROL [Suspect]
     Active Substance: BUDESONIDE\FORMOTEROL
     Dosage: 60 MICROGRAM PER INHALATION
  8. BUDESONIDE\FORMOTEROL [Suspect]
     Active Substance: BUDESONIDE\FORMOTEROL
     Dosage: 60 MICROGRAM PER INHALATION
  9. ASPIRIN [Concomitant]
     Active Substance: ASPIRIN
     Indication: Anticoagulant therapy
  10. ASPIRIN [Concomitant]
     Active Substance: ASPIRIN
  11. ASPIRIN [Concomitant]
     Active Substance: ASPIRIN
  12. ASPIRIN [Concomitant]
     Active Substance: ASPIRIN
  13. Lipogen [Concomitant]
     Indication: Blood cholesterol
  14. Lipogen [Concomitant]
  15. ESOMEPRAZOLE [Concomitant]
     Active Substance: ESOMEPRAZOLE
     Indication: Gastrooesophageal reflux disease
  16. ESOMEPRAZOLE [Concomitant]
     Active Substance: ESOMEPRAZOLE
  17. BISOPROLOL [Concomitant]
     Active Substance: BISOPROLOL
     Indication: Hypertension
  18. BISOPROLOL [Concomitant]
     Active Substance: BISOPROLOL
     Route: 065
  19. ISOSORBIDE MONONITRATE [Concomitant]
     Active Substance: ISOSORBIDE MONONITRATE
     Indication: Angina pectoris
  20. ISOSORBIDE MONONITRATE [Concomitant]
     Active Substance: ISOSORBIDE MONONITRATE
  21. DORMONOCT [Concomitant]
     Active Substance: LOPRAZOLAM
     Indication: Sleep disorder
  22. DORMONOCT [Concomitant]
     Active Substance: LOPRAZOLAM

REACTIONS (3)
  - Pulmonary congestion [Unknown]
  - Pneumonia [Unknown]
  - Pulmonary mass [Unknown]
